FAERS Safety Report 24434107 (Version 1)
Quarter: 2024Q4

REPORT INFORMATION
  Report Type: Spontaneous
  Country: US (occurrence: US)
  Receive Date: 20241014
  Receipt Date: 20241014
  Transmission Date: 20250115
  Serious: No
  Sender: ROCHE
  Company Number: US-ROCHE-10000103587

PATIENT
  Sex: Female

DRUGS (1)
  1. ACTEMRA [Suspect]
     Active Substance: TOCILIZUMAB
     Indication: Product used for unknown indication
     Dosage: 400MG/20ML
     Route: 058
     Dates: start: 202409

REACTIONS (3)
  - Pain [Unknown]
  - Loss of personal independence in daily activities [Unknown]
  - Gait inability [Unknown]
